FAERS Safety Report 22345549 (Version 1)
Quarter: 2023Q2

REPORT INFORMATION
  Report Type: Spontaneous
  Country: TW (occurrence: TW)
  Receive Date: 20230519
  Receipt Date: 20230519
  Transmission Date: 20230722
  Serious: Yes (Hospitalization)
  Sender: FDA-Public Use
  Company Number: TW-DSJP-DSJ-2023-119023

PATIENT
  Age: 92 Year
  Sex: Female
  Weight: 45.7 kg

DRUGS (1)
  1. EDOXABAN [Suspect]
     Active Substance: EDOXABAN
     Indication: Atrial fibrillation
     Dosage: 15 MG, QD
     Route: 048

REACTIONS (10)
  - Gastrointestinal haemorrhage [Unknown]
  - Urinary tract infection [Unknown]
  - Melaena [Unknown]
  - Abdominal pain [Unknown]
  - Anaemia [Unknown]
  - Haematuria [Unknown]
  - Catheter site haemorrhage [Recovering/Resolving]
  - Haematochezia [Unknown]
  - Hypotension [Unknown]
  - Tachycardia [Unknown]
